FAERS Safety Report 8836220 (Version 2)
Quarter: 2012Q4

REPORT INFORMATION
  Report Type: 
  Country: US (occurrence: US)
  Receive Date: 20121011
  Receipt Date: 20121203
  Transmission Date: 20130627
  Serious: No
  Sender: FDA-Public Use
  Company Number: US-PFIZER INC-2012247588

PATIENT
  Sex: Female

DRUGS (1)
  1. XALATAN [Suspect]
     Indication: INTRAOCULAR PRESSURE HIGH
     Dosage: UNK

REACTIONS (1)
  - Intraocular pressure increased [Unknown]
